FAERS Safety Report 21591887 (Version 2)
Quarter: 2022Q4

REPORT INFORMATION
  Report Type: Spontaneous
  Country: AT (occurrence: AT)
  Receive Date: 20221114
  Receipt Date: 20221122
  Transmission Date: 20230112
  Serious: Yes (Other)
  Sender: FDA-Public Use
  Company Number: AT-DSJP-DSE-2022-141018

PATIENT
  Age: 63 Year
  Sex: Male
  Weight: 83 kg

DRUGS (2)
  1. EDOXABAN TOSYLATE [Suspect]
     Active Substance: EDOXABAN TOSYLATE
     Indication: Atrial flutter
     Dosage: 60 MG
     Route: 065
     Dates: start: 20221004, end: 20221012
  2. RIVACOR [RIVAROXABAN] [Concomitant]
     Indication: Product used for unknown indication
     Dosage: 2.5 MG
     Route: 065

REACTIONS (4)
  - Cardioversion [Unknown]
  - Diarrhoea [Unknown]
  - Gastritis [Unknown]
  - Product use in unapproved indication [Recovered/Resolved]

NARRATIVE: CASE EVENT DATE: 20221001
